FAERS Safety Report 9228506 (Version 1)
Quarter: 2013Q1

REPORT INFORMATION
  Report Type: Spontaneous
  Country: US (occurrence: None)
  Receive Date: 20121010
  Receipt Date: 20121010
  Transmission Date: 20140127
  Serious: Yes (Other)
  Sender: FDA-Public Use
  Company Number: 2011POI057500024

PATIENT
  Age: 0 Day
  Sex: Male

DRUGS (1)
  1. ROXICODONE [Suspect]

REACTIONS (1)
  - Drug dependence [None]
